FAERS Safety Report 7382117-5 (Version None)
Quarter: 2011Q1

REPORT INFORMATION
  Report Type: 
  Country: None (occurrence: None)
  Receive Date: 20110329
  Receipt Date: 20110317
  Transmission Date: 20110831
  Serious: Yes (Hospitalization, Other)
  Sender: FDA-Public Use
  Company Number: PHEH2007US13698

PATIENT
  Sex: Female
  Weight: 64.399 kg

DRUGS (56)
  1. DOCETAXEL [Concomitant]
     Dosage: UNK
  2. AROMASIN [Concomitant]
  3. AREDIA [Suspect]
     Indication: METASTASES TO BONE
     Dosage: 90 MG, QMO
     Route: 042
     Dates: start: 20010801, end: 20041011
  4. TAXOTERE [Concomitant]
     Dosage: 20 MG, UNK
  5. FOSAMAX [Concomitant]
  6. ANCEF [Concomitant]
  7. ACYCLOVIR [Concomitant]
  8. DIFLUCAN [Concomitant]
  9. DECADRON                                /NET/ [Concomitant]
  10. BENADRYL ^ACHE^ [Concomitant]
  11. VITAMIN K TAB [Concomitant]
  12. TAGAMET [Concomitant]
  13. RITALIN [Concomitant]
  14. NAVELBINE [Concomitant]
     Dosage: UNK, UNK
  15. ANASTROZOLE [Concomitant]
  16. ULTRACET [Concomitant]
  17. SKELAXIN [Concomitant]
  18. MELOXICAM [Concomitant]
  19. BICITRA                            /02399901/ [Concomitant]
  20. CONCERTA [Concomitant]
  21. ZOMETA [Suspect]
     Dosage: 4 MG, UNK
     Route: 042
     Dates: start: 20020524
  22. DURAGESIC-50 [Concomitant]
     Dosage: UNK
  23. PROMETHAZINE [Concomitant]
  24. CEPHALEXIN [Concomitant]
  25. TRAMADOL [Concomitant]
  26. FLEXERIL [Concomitant]
  27. MAXIPIME [Concomitant]
  28. PERI-COLACE [Concomitant]
  29. MIACALCIN [Concomitant]
     Dosage: UNK
  30. GEMCITABINE [Concomitant]
  31. CELEBREX [Concomitant]
  32. AMOXICILLIN [Concomitant]
  33. SOMA [Concomitant]
  34. LORCET-HD [Concomitant]
     Dosage: UNK
  35. PHENERGAN [Concomitant]
  36. TRAZODONE [Concomitant]
  37. GENTAMICIN [Concomitant]
  38. QUININE SULFATE [Concomitant]
  39. HYDROCODONE BITARTRATE [Concomitant]
     Dosage: 5 MG, PRN
     Route: 048
  40. NEURONTIN [Concomitant]
  41. LORTAB [Concomitant]
     Dosage: UNK
  42. CLOBETASOL PROPIONATE [Concomitant]
  43. PROPOXYPHENE NAPSYLATE W/ ACETAMINOPHEN [Concomitant]
  44. HYDROXYZINE [Concomitant]
  45. MORPHINE [Concomitant]
  46. ARIMIDEX [Concomitant]
     Dosage: UNK
     Dates: start: 20010801
  47. FASLODEX [Concomitant]
     Dosage: 250 MG, QMO
     Route: 030
     Dates: start: 20041213
  48. GEMZAR [Concomitant]
  49. PERIDEX [Concomitant]
  50. TEQUIN [Concomitant]
  51. CYCLOBENZAPRINE [Concomitant]
  52. EFFEXOR XR [Concomitant]
  53. AMBIEN [Concomitant]
  54. DIAZEPAM [Concomitant]
  55. PEPCID [Concomitant]
  56. PROTONIX [Concomitant]

REACTIONS (83)
  - GINGIVAL OEDEMA [None]
  - TENDERNESS [None]
  - OSTEITIS [None]
  - SWELLING [None]
  - ARTERIOSCLEROSIS [None]
  - PNEUMOTHORAX [None]
  - COMPRESSION FRACTURE [None]
  - INTERVERTEBRAL DISC DEGENERATION [None]
  - ARTHROPATHY [None]
  - SPINAL DEFORMITY [None]
  - PAIN IN EXTREMITY [None]
  - BREAST CANCER METASTATIC [None]
  - ARTHRITIS [None]
  - VENOUS INSUFFICIENCY [None]
  - DYSPNOEA [None]
  - VISION BLURRED [None]
  - PULMONARY FIBROSIS [None]
  - MUSCULOSKELETAL CHEST PAIN [None]
  - SYNCOPE [None]
  - LYMPHOEDEMA [None]
  - CORNEAL DYSTROPHY [None]
  - CATARACT NUCLEAR [None]
  - MYOPIA [None]
  - OSTEOMYELITIS [None]
  - OSTEOSCLEROSIS [None]
  - RECTAL HAEMORRHAGE [None]
  - DEVICE RELATED INFECTION [None]
  - GINGIVAL INFECTION [None]
  - HYPERCOAGULATION [None]
  - DEPRESSIVE SYMPTOM [None]
  - BACK PAIN [None]
  - GASTROINTESTINAL HAEMORRHAGE [None]
  - HAEMATOCHEZIA [None]
  - CHEST PAIN [None]
  - STAPHYLOCOCCAL INFECTION [None]
  - HYPOTENSION [None]
  - ANOGENITAL WARTS [None]
  - METATARSUS PRIMUS VARUS [None]
  - LOCALISED INFECTION [None]
  - CHRONIC OBSTRUCTIVE PULMONARY DISEASE [None]
  - CONSTIPATION [None]
  - RADIUS FRACTURE [None]
  - FALL [None]
  - HEADACHE [None]
  - FOOT FRACTURE [None]
  - VARICOSE VEIN [None]
  - OSTEONECROSIS OF JAW [None]
  - GINGIVAL RECESSION [None]
  - FACE AND MOUTH X-RAY ABNORMAL [None]
  - ARTHRALGIA [None]
  - METASTASES TO BONE [None]
  - ANAEMIA [None]
  - METASTASES TO CENTRAL NERVOUS SYSTEM [None]
  - OSTEOPOROSIS [None]
  - TENDON DISORDER [None]
  - JOINT EFFUSION [None]
  - SEBORRHOEIC KERATOSIS [None]
  - THROMBOPHLEBITIS [None]
  - PRESBYOPIA [None]
  - IMPAIRED HEALING [None]
  - COMPUTERISED TOMOGRAM ABNORMAL [None]
  - FATIGUE [None]
  - SYNOVIAL CYST [None]
  - NIGHT SWEATS [None]
  - TINNITUS [None]
  - BUNION [None]
  - NEURODERMATITIS [None]
  - FOOT DEFORMITY [None]
  - ASTIGMATISM [None]
  - DEVICE FAILURE [None]
  - DEEP VEIN THROMBOSIS [None]
  - LUNG NEOPLASM [None]
  - BONE SCAN ABNORMAL [None]
  - AGRANULOCYTOSIS [None]
  - ILEUS PARALYTIC [None]
  - OSTEOARTHRITIS [None]
  - LOOSE TOOTH [None]
  - WEIGHT DECREASED [None]
  - CORONARY ARTERY DISEASE [None]
  - STREPTOCOCCAL INFECTION [None]
  - SPINAL DISORDER [None]
  - BONE ATROPHY [None]
  - VAGINAL INFECTION [None]
